FAERS Safety Report 6866332-2 (Version None)
Quarter: 2010Q3

REPORT INFORMATION
  Report Type: 
  Country: None (occurrence: None)
  Receive Date: 20100722
  Receipt Date: 20100708
  Transmission Date: 20110219
  Serious: Yes (Other)
  Sender: FDA-Public Use
  Company Number: US-JNJFOC-20100705820

PATIENT
  Age: 71 Year
  Sex: Male
  Weight: 79.38 kg

DRUGS (2)
  1. MOTRIN IB [Suspect]
     Route: 065
  2. MOTRIN IB [Suspect]
     Indication: LIMB INJURY
     Route: 065

REACTIONS (1)
  - DYSPNOEA [None]
